FAERS Safety Report 9257707 (Version 1)
Quarter: 2013Q1

REPORT INFORMATION
  Report Type: Spontaneous
  Country: US (occurrence: None)
  Receive Date: 20121212
  Receipt Date: 20121212
  Transmission Date: 20140127
  Serious: No
  Sender: FDA-Public Use
  Company Number: 1208USA012215

PATIENT
  Age: 48 Year
  Sex: Male

DRUGS (5)
  1. VICTRELIS [Suspect]
     Route: 048
     Dates: start: 20120814
  2. PEGASYS [Suspect]
  3. RIBASPHERE [Suspect]
  4. VALIUM (DIAZEPAM) [Concomitant]
  5. LISINOPRIL (LISINOPRIL) [Concomitant]

REACTIONS (1)
  - Mood swings [None]
